FAERS Safety Report 8234053-X (Version None)
Quarter: 2012Q1

REPORT INFORMATION
  Report Type: 
  Country: None (occurrence: None)
  Receive Date: 20120326
  Receipt Date: 20120326
  Transmission Date: 20120608
  Serious: Yes (Other)
  Sender: FDA-Public Use
  Company Number: None

PATIENT
  Sex: Female
  Weight: 61.234 kg

DRUGS (2)
  1. ENALAPRIL MALEATE [Suspect]
     Indication: PROPHYLAXIS
     Dosage: 20
     Route: 048
  2. ENALAPRIL MALEATE [Suspect]
     Indication: RENAL DISORDER
     Dosage: 20
     Route: 048

REACTIONS (4)
  - CONNECTIVE TISSUE DISORDER [None]
  - SPINAL LIGAMENT OSSIFICATION [None]
  - ARTHRITIS [None]
  - HYPOAESTHESIA [None]
